FAERS Safety Report 4268930-1 (Version None)
Quarter: 2004Q1

REPORT INFORMATION
  Report Type: 
  Country: None (occurrence: None)
  Receive Date: 20040108
  Receipt Date: 20031223
  Transmission Date: 20041129
  Serious: Yes (Other)
  Sender: FDA-Public Use
  Company Number: USA031253877

PATIENT
  Age: 12 Year
  Sex: Female
  Weight: 55 kg

DRUGS (2)
  1. PROZAC [Suspect]
     Indication: DEPRESSION
     Dosage: 20 MG/DAY
     Dates: start: 20030201
  2. OXCARBAZEPINE [Concomitant]

REACTIONS (2)
  - PSEUDO LYMPHOMA [None]
  - VULVAL DISORDER [None]
